FAERS Safety Report 14727629 (Version 2)
Quarter: 2018Q2

REPORT INFORMATION
  Report Type: Spontaneous
  Country: US (occurrence: US)
  Receive Date: 20180406
  Receipt Date: 20180522
  Transmission Date: 20180711
  Serious: No
  Sender: FDA-Public Use
  Company Number: US-GE HEALTHCARE LIFE SCIENCES-2018CSU000886

PATIENT
  Age: 39 Year
  Sex: Male
  Weight: 77.1 kg

DRUGS (1)
  1. OMNIPAQUE [Suspect]
     Active Substance: IOHEXOL
     Indication: ABDOMINAL PAIN
     Dosage: 94 ML, SINGLE
     Route: 042
     Dates: start: 20180228, end: 20180228

REACTIONS (3)
  - Pruritus generalised [Recovering/Resolving]
  - Vomiting [Recovered/Resolved]
  - Urticaria [Recovering/Resolving]

NARRATIVE: CASE EVENT DATE: 20180228
